FAERS Safety Report 18082613 (Version 2)
Quarter: 2020Q3

REPORT INFORMATION
  Report Type: Spontaneous
  Country: US (occurrence: US)
  Receive Date: 20200729
  Receipt Date: 20200828
  Transmission Date: 20201103
  Serious: No
  Sender: FDA-Public Use
  Company Number: US-APOTEX-2020AP013587

PATIENT
  Sex: Female

DRUGS (1)
  1. NICOTINE. [Suspect]
     Active Substance: NICOTINE
     Indication: SMOKING CESSATION THERAPY
     Dosage: 4 DOSAGE FORM
     Route: 062

REACTIONS (4)
  - Application site irritation [Recovering/Resolving]
  - Application site erythema [Not Recovered/Not Resolved]
  - Application site pain [Unknown]
  - Hypersensitivity [Unknown]
